FAERS Safety Report 5037039-1 (Version None)
Quarter: 2006Q2

REPORT INFORMATION
  Report Type: 
  Country: None (occurrence: None)
  Receive Date: 20060622
  Receipt Date: 20060608
  Transmission Date: 20061013
  Serious: Yes (Other)
  Sender: FDA-Public Use
  Company Number: A-US2005-09029

PATIENT
  Age: 26 Year
  Sex: Female

DRUGS (2)
  1. TRACLEER [Suspect]
     Indication: PULMONARY HYPERTENSION
     Dosage: 62.5 MG, BID, ORAL
     Route: 048
     Dates: start: 20041101, end: 20050218
  2. ORAL CONTRACEPTIVES NOS (ORAL CONTRACEPTIVE NOS) [Concomitant]

REACTIONS (5)
  - ABDOMINAL PAIN [None]
  - ABORTION INDUCED [None]
  - DRUG EXPOSURE DURING PREGNANCY [None]
  - PREGNANCY [None]
  - VAGINAL HAEMORRHAGE [None]
